FAERS Safety Report 19963653 (Version 1)
Quarter: 2021Q4

REPORT INFORMATION
  Report Type: Spontaneous
  Country: US (occurrence: US)
  Receive Date: 20211018
  Receipt Date: 20211018
  Transmission Date: 20220304
  Serious: No
  Sender: FDA-Public Use
  Company Number: None

PATIENT
  Age: 62 Year
  Sex: Female
  Weight: 54 kg

DRUGS (7)
  1. ALENDRONATE SODIUM [Suspect]
     Active Substance: ALENDRONATE SODIUM
     Indication: Osteopenia
     Dosage: ?          QUANTITY:1 TABLET(S);OTHER FREQUENCY:WEEKLY;
     Route: 048
     Dates: start: 20210501, end: 20210731
  2. PREMARIN [Concomitant]
     Active Substance: ESTROGENS, CONJUGATED
  3. LANOPROST EYE DROPS [Concomitant]
  4. TRETINOIN [Concomitant]
     Active Substance: TRETINOIN
  5. VITAMIN D [Concomitant]
     Active Substance: VITAMIN D NOS
  6. ZINC [Concomitant]
     Active Substance: ZINC
  7. CALCIUM [Concomitant]
     Active Substance: CALCIUM

REACTIONS (1)
  - Exostosis of jaw [None]

NARRATIVE: CASE EVENT DATE: 20210804
